FAERS Safety Report 10050762 (Version 1)
Quarter: 2014Q2

REPORT INFORMATION
  Report Type: Spontaneous
  Country: US (occurrence: US)
  Receive Date: 20140401
  Receipt Date: 20140401
  Transmission Date: 20141212
  Serious: No
  Sender: FDA-Public Use
  Company Number: US-ASTRAZENECA-2013SE72778

PATIENT
  Age: 66 Year
  Sex: Female

DRUGS (3)
  1. NEXIUM [Suspect]
     Indication: GASTROOESOPHAGEAL REFLUX DISEASE
     Route: 048
     Dates: start: 2009
  2. ZESTORETIC [Suspect]
     Indication: BLOOD PRESSURE ABNORMAL
     Dosage: 20-25 DAILY
     Route: 048
     Dates: start: 201308
  3. LEVOXIL [Concomitant]
     Indication: THYROXINE DECREASED
     Dosage: 0.75 DAILY
     Route: 048
     Dates: start: 1983

REACTIONS (4)
  - Hypertension [Unknown]
  - Osteoarthritis [Unknown]
  - Body height decreased [Unknown]
  - Intentional product misuse [Unknown]
